FAERS Safety Report 17214611 (Version 1)
Quarter: 2020Q1

REPORT INFORMATION
  Report Type: Spontaneous
  Country: US (occurrence: US)
  Receive Date: 20191229
  Receipt Date: 20191229
  Transmission Date: 20200409
  Serious: Yes (Disabling, Other)
  Sender: FDA-Public Use
  Company Number: None

PATIENT
  Age: 59 Year
  Sex: Female
  Weight: 60.75 kg

DRUGS (6)
  1. METHANAMINE [Concomitant]
  2. XTAMPZA [Concomitant]
     Active Substance: OXYCODONE
  3. OXYCODONE 5 MG [Suspect]
     Active Substance: OXYCODONE
     Indication: PANCREATITIS
     Dosage: ?          QUANTITY:1 TABLET(S);?
     Route: 048
  4. MIRALAX [Concomitant]
     Active Substance: POLYETHYLENE GLYCOL 3350
  5. CREON [Concomitant]
     Active Substance: PANCRELIPASE AMYLASE\PANCRELIPASE LIPASE\PANCRELIPASE PROTEASE
  6. ASPIRIN. [Concomitant]
     Active Substance: ASPIRIN

REACTIONS (5)
  - Sensory disturbance [None]
  - Product contamination [None]
  - Malaise [None]
  - Product quality issue [None]
  - Pain [None]

NARRATIVE: CASE EVENT DATE: 20191228
